FAERS Safety Report 4414067-8 (Version None)
Quarter: 2004Q3

REPORT INFORMATION
  Report Type: 
  Country: None (occurrence: None)
  Receive Date: 20040728
  Receipt Date: 20040721
  Transmission Date: 20050211
  Serious: Yes (Hospitalization)
  Sender: FDA-Public Use
  Company Number: 2004US000811

PATIENT
  Age: 54 Year
  Sex: Female

DRUGS (10)
  1. PROGRAF [Suspect]
     Indication: LIVER TRANSPLANT
     Dosage: 1.00 MG, UID/QD, ORAL
     Route: 048
  2. PEGINTERFERON ALFA-2B (PEGINTERFERON ALFA-2B) INJECTION [Suspect]
     Indication: HEPATITIS C
     Dosage: UG, WEEKLY, SUBCUTANEOUS
     Route: 058
     Dates: start: 20020902, end: 20030410
  3. PREDNISOLONE [Concomitant]
  4. TEMAZEPAM [Concomitant]
  5. AZATHIOPRINE [Concomitant]
  6. ATENOLOL [Concomitant]
  7. AMLODIPINE [Concomitant]
  8. BENDROFLUAZIDE [Concomitant]
  9. QUESTRAN [Concomitant]
  10. MAXOLON [Concomitant]

REACTIONS (3)
  - CARDIOMYOPATHY [None]
  - MYOPATHY [None]
  - MYOSITIS [None]
